FAERS Safety Report 5835004-5 (Version None)
Quarter: 2008Q3

REPORT INFORMATION
  Report Type: 
  Country: None (occurrence: None)
  Receive Date: 20080804
  Receipt Date: 20080724
  Transmission Date: 20090109
  Serious: Yes (Other)
  Sender: FDA-Public Use
  Company Number: 1000000330

PATIENT
  Age: 83 Year
  Sex: Female

DRUGS (3)
  1. MEMANTINE HCL [Suspect]
     Dates: start: 20080530
  2. ARICEPT [Suspect]
  3. MARCUMAR [Concomitant]

REACTIONS (2)
  - ECZEMA [None]
  - VASCULITIS [None]
